FAERS Safety Report 4506005-4 (Version None)
Quarter: 2004Q4

REPORT INFORMATION
  Report Type: 
  Country: None (occurrence: None)
  Receive Date: 20041025
  Receipt Date: 20030925
  Transmission Date: 20050328
  Serious: Yes (Other)
  Sender: FDA-Public Use
  Company Number: US-JNJFOC-20030906087

PATIENT
  Age: 71 Year
  Sex: Female
  Weight: 69.4003 kg

DRUGS (6)
  1. REMICADE [Suspect]
     Indication: RHEUMATOID ARTHRITIS
     Dosage: 200 MG, 1 IN 1 TOTAL, INTRAVENOUS
     Route: 042
     Dates: start: 20021230
  2. ARAVA [Concomitant]
  3. FOSAMAX [Concomitant]
  4. FOLIC ACID [Concomitant]
  5. DARVOCET [Concomitant]
  6. PREDNISONE [Concomitant]

REACTIONS (1)
  - MYOCARDIAL INFARCTION [None]
